FAERS Safety Report 22045306 (Version 3)
Quarter: 2023Q2

REPORT INFORMATION
  Report Type: Spontaneous
  Country: FI (occurrence: FI)
  Receive Date: 20230228
  Receipt Date: 20230406
  Transmission Date: 20230721
  Serious: No
  Sender: FDA-Public Use
  Company Number: FI-JNJFOC-20230227807

PATIENT

DRUGS (1)
  1. TREMFYA [Suspect]
     Active Substance: GUSELKUMAB
     Indication: Product used for unknown indication
     Route: 065

REACTIONS (1)
  - Syringe issue [Unknown]
